FAERS Safety Report 22650430 (Version 5)
Quarter: 2023Q4

REPORT INFORMATION
  Report Type: Spontaneous
  Country: US (occurrence: US)
  Receive Date: 20230628
  Receipt Date: 20231023
  Transmission Date: 20240109
  Serious: No
  Sender: FDA-Public Use
  Company Number: US-PFIZER INC-202300230944

PATIENT
  Age: 10 Year
  Sex: Male
  Weight: 31.746 kg

DRUGS (1)
  1. GENOTROPIN [Suspect]
     Active Substance: SOMATROPIN
     Indication: Short stature
     Dosage: UNK, 1X/DAY (1.2 EVERY NIGHT. ONCE)

REACTIONS (7)
  - Wrong technique in device usage process [Unknown]
  - Incorrect dose administered by device [Unknown]
  - Needle issue [Unknown]
  - Poor quality device used [Unknown]
  - Device leakage [Unknown]
  - Device breakage [Unknown]
  - Device failure [Unknown]

NARRATIVE: CASE EVENT DATE: 20230813
